FAERS Safety Report 8779855 (Version 1)
Quarter: 2012Q4

REPORT INFORMATION
  Report Type: 
  Country: US (occurrence: US)
  Receive Date: 20120912
  Receipt Date: 20120912
  Transmission Date: 20130627
  Serious: No
  Sender: FDA-Public Use
  Company Number: US-ASTRAZENECA-2012SE61030

PATIENT
  Age: 84 Year
  Sex: Female
  Weight: 60.8 kg

DRUGS (11)
  1. PLENDIL [Suspect]
     Indication: BLOOD PRESSURE
     Route: 048
  2. PLENDIL [Suspect]
     Indication: BLOOD PRESSURE
     Dosage: GENERIC
     Route: 048
  3. ROSUVASTATIN [Suspect]
     Route: 048
  4. ATACAND [Concomitant]
  5. ASPIRIN [Concomitant]
     Dosage: EVERY MORNING
  6. ZETIA [Concomitant]
  7. CHLOROHYDRATE [Concomitant]
  8. PAROXETINE [Concomitant]
  9. VALIUM [Concomitant]
     Dosage: AS REQUIRED
  10. WELCHO [Concomitant]
     Indication: PAIN
     Dosage: AS REQUIRED
  11. WELCHO [Concomitant]
     Indication: HEADACHE
     Dosage: AS REQUIRED

REACTIONS (5)
  - Body height decreased [Unknown]
  - Fatigue [Unknown]
  - Drug hypersensitivity [Unknown]
  - Drug ineffective [Unknown]
  - Blood pressure increased [Unknown]
